FAERS Safety Report 5305529-X (Version None)
Quarter: 2007Q2

REPORT INFORMATION
  Report Type: 
  Country: None (occurrence: None)
  Receive Date: 20070424
  Receipt Date: 20060822
  Transmission Date: 20071010
  Serious: No
  Sender: FDA-Public Use
  Company Number: US-GLAXOSMITHKLINE-A0617663A

PATIENT
  Age: 65 Year
  Sex: Female

DRUGS (5)
  1. FLOVENT [Suspect]
     Indication: ASTHMA
     Route: 055
  2. SEREVENT [Suspect]
     Indication: ASTHMA
     Route: 055
  3. SINGULAIR [Concomitant]
  4. MIRALAX [Concomitant]
  5. ACTONEL [Concomitant]

REACTIONS (1)
  - TREMOR [None]
